FAERS Safety Report 7382534-3 (Version None)
Quarter: 2011Q1

REPORT INFORMATION
  Report Type: 
  Country: None (occurrence: None)
  Receive Date: 20110329
  Receipt Date: 20110328
  Transmission Date: 20110831
  Serious: Yes (Hospitalization)
  Sender: FDA-Public Use
  Company Number: US-BRISTOL-MYERS SQUIBB COMPANY-15013634

PATIENT
  Age: 80 Year
  Sex: Female

DRUGS (1)
  1. ONGLYZA [Suspect]
     Indication: DIABETES MELLITUS

REACTIONS (1)
  - PANCREATITIS [None]
